FAERS Safety Report 8883377 (Version 8)
Quarter: 2015Q2

REPORT INFORMATION
  Report Type: Spontaneous
  Country: US (occurrence: US)
  Receive Date: 20121102
  Receipt Date: 20150407
  Transmission Date: 20150821
  Serious: Yes (Other)
  Sender: FDA-Public Use
  Company Number: US-009507513-1210USA013152

PATIENT
  Sex: Male
  Weight: 97.52 kg

DRUGS (2)
  1. PROPECIA [Suspect]
     Active Substance: FINASTERIDE
     Dosage: 1 MG, QD
     Route: 048
     Dates: start: 20050702, end: 200710
  2. PROPECIA [Suspect]
     Active Substance: FINASTERIDE
     Indication: ALOPECIA
     Dosage: 1 MG, UNK
     Route: 048
     Dates: start: 19990403, end: 19991003

REACTIONS (41)
  - Cognitive disorder [Not Recovered/Not Resolved]
  - Hypogonadism [Unknown]
  - Haemorrhoids [Unknown]
  - Wheezing [Unknown]
  - Urinary tract infection [Unknown]
  - Rotator cuff repair [Unknown]
  - Nasal operation [Unknown]
  - Autonomic neuropathy [Unknown]
  - Prostatic disorder [Not Recovered/Not Resolved]
  - Testicular disorder [Not Recovered/Not Resolved]
  - Libido decreased [Not Recovered/Not Resolved]
  - Asthenia [Unknown]
  - Urinary hesitation [Unknown]
  - Adenotonsillectomy [Unknown]
  - Knee operation [Unknown]
  - Musculoskeletal disorder [Unknown]
  - Haematuria [Unknown]
  - Hypothyroidism [Not Recovered/Not Resolved]
  - Peripheral vascular disorder [Unknown]
  - Appendicectomy [Unknown]
  - Thirst [Unknown]
  - Nasal congestion [Unknown]
  - Gastrooesophageal reflux disease [Not Recovered/Not Resolved]
  - Sexual dysfunction [Not Recovered/Not Resolved]
  - Rhinitis allergic [Unknown]
  - Pollakiuria [Unknown]
  - Nocturia [Unknown]
  - Chronic obstructive pulmonary disease [Not Recovered/Not Resolved]
  - Blood cholesterol increased [Unknown]
  - Hernia repair [Unknown]
  - Organic erectile dysfunction [Not Recovered/Not Resolved]
  - Headache [Unknown]
  - Hypersensitivity [Unknown]
  - Dyspnoea [Unknown]
  - Urinary retention [Unknown]
  - Blood potassium decreased [Unknown]
  - Constipation [Unknown]
  - Benign prostatic hyperplasia [Not Recovered/Not Resolved]
  - Back pain [Unknown]
  - Arthralgia [Unknown]
  - Constipation [Unknown]

NARRATIVE: CASE EVENT DATE: 20021203
